FAERS Safety Report 26151689 (Version 1)
Quarter: 2025Q4

REPORT INFORMATION
  Report Type: Report from Study
  Country: EU (occurrence: EU)
  Receive Date: 20251212
  Receipt Date: 20251212
  Transmission Date: 20260118
  Serious: Yes (Other)
  Sender: NOVARTIS
  Company Number: EU-002147023-NVSC2025DE110629

PATIENT
  Sex: Female
  Weight: 82 kg

DRUGS (4)
  1. KISQALI [Suspect]
     Active Substance: RIBOCICLIB SUCCINATE
     Indication: Hormone receptor positive HER2 negative breast cancer
     Dosage: 400 MG (TOTAL DAILY DOSE) (2X 200 MG) 21 DAYS DAILY INTAKE, 7 DAYS PAUSE, ONCE IN THE MORNING DAY 1-
     Route: 048
     Dates: start: 20250528, end: 20250708
  2. KISQALI [Suspect]
     Active Substance: RIBOCICLIB SUCCINATE
     Dosage: 400 MG, QD, 21 DAYS DAILY INTAKE, 7 DAYS PAUSE
     Route: 048
     Dates: start: 20250812, end: 20250922
  3. KISQALI [Suspect]
     Active Substance: RIBOCICLIB SUCCINATE
     Dosage: 200 MG, QD 21 DAYS DAILY INTAKE, 7 DAYS PAUSE
     Route: 048
     Dates: start: 20250923, end: 20251020
  4. LETROZOLE [Suspect]
     Active Substance: LETROZOLE
     Indication: Hormone receptor positive HER2 negative breast cancer
     Dosage: 2.5 MG, QD
     Route: 048
     Dates: start: 20250528

REACTIONS (5)
  - Hepatotoxicity [Recovered/Resolved]
  - Aspartate aminotransferase increased [Recovering/Resolving]
  - Alanine aminotransferase increased [Recovering/Resolving]
  - Pruritus [Unknown]
  - Hepatotoxicity [Not Recovered/Not Resolved]

NARRATIVE: CASE EVENT DATE: 20250709
